FAERS Safety Report 15654462 (Version 2)
Quarter: 2018Q4

REPORT INFORMATION
  Report Type: Spontaneous
  Country: ES (occurrence: ES)
  Receive Date: 20181126
  Receipt Date: 20181126
  Transmission Date: 20190205
  Serious: Yes (Hospitalization, Other)
  Sender: FDA-Public Use
  Company Number: ES-IPCA LABORATORIES LIMITED-IPC-2018-ES-002334

PATIENT

DRUGS (1)
  1. HYDROXYCHLOROQUINE [Suspect]
     Active Substance: HYDROXYCHLOROQUINE
     Indication: CONNECTIVE TISSUE DISORDER
     Dosage: 42 DF, SINGLE
     Route: 048

REACTIONS (13)
  - Fall [Unknown]
  - Lactic acidosis [Unknown]
  - Hypotension [Unknown]
  - Electrocardiogram QT prolonged [Unknown]
  - Hypokalaemia [Unknown]
  - Pupils unequal [Unknown]
  - Torsade de pointes [Unknown]
  - Suicide attempt [Unknown]
  - Ventricular tachycardia [Unknown]
  - Toxicity to various agents [Unknown]
  - Cardio-respiratory arrest [Unknown]
  - Overdose [Unknown]
  - Coma scale abnormal [Unknown]
